FAERS Safety Report 17567006 (Version 2)
Quarter: 2020Q2

REPORT INFORMATION
  Report Type: Spontaneous
  Country: JP (occurrence: JP)
  Receive Date: 20200320
  Receipt Date: 20200409
  Transmission Date: 20200713
  Serious: Yes (Hospitalization, Other)
  Sender: FDA-Public Use
  Company Number: JP-JNJFOC-20200319863

PATIENT
  Age: 92 Year
  Sex: Female

DRUGS (5)
  1. TRAPIDIL [Concomitant]
     Active Substance: TRAPIDIL
  2. JUVELA N [Concomitant]
     Active Substance: TOCOPHERYL NICOTINATE, D-.ALPHA.
  3. LIMAPROST ALFADEX [Concomitant]
     Active Substance: LIMAPROST
  4. RIVAROXABAN [Suspect]
     Active Substance: RIVAROXABAN
     Indication: ATRIAL FIBRILLATION
     Dosage: 10 MG, QD
     Route: 048
  5. ROCORNAL [Concomitant]
     Active Substance: TRAPIDIL

REACTIONS (1)
  - Cerebral haemorrhage [Recovered/Resolved]

NARRATIVE: CASE EVENT DATE: 20200215
